FAERS Safety Report 6360070-0 (Version None)
Quarter: 2009Q3

REPORT INFORMATION
  Report Type: 
  Country: None (occurrence: None)
  Receive Date: 20090917
  Receipt Date: 20090909
  Transmission Date: 20100115
  Serious: Yes (Hospitalization, Other)
  Sender: FDA-Public Use
  Company Number: PHHY2009BR38707

PATIENT
  Sex: Female

DRUGS (2)
  1. DIOVAN HCT [Suspect]
     Dosage: 320/12.5MG
  2. RASILEZ [Suspect]
     Dosage: 300MG

REACTIONS (3)
  - ABDOMINAL PAIN UPPER [None]
  - HYPERTENSION [None]
  - HYSTERECTOMY [None]
